FAERS Safety Report 5146139-7 (Version None)
Quarter: 2006Q4

REPORT INFORMATION
  Report Type: 
  Country: None (occurrence: None)
  Receive Date: 20061108
  Receipt Date: 20060906
  Transmission Date: 20070319
  Serious: Yes (Hospitalization)
  Sender: FDA-Public Use
  Company Number: US-ROCHE-462453

PATIENT
  Age: 47 Year
  Sex: Male

DRUGS (4)
  1. PEGASYS [Suspect]
     Dosage: STRENGTH AND FORMULATION REPORTED AS 180 MCG/0.5ML.
     Route: 058
     Dates: start: 20060501
  2. COPEGUS [Suspect]
     Route: 048
     Dates: start: 20060501
  3. WELLBUTRIN [Concomitant]
     Dates: start: 20060201
  4. ZOLOFT [Concomitant]
     Dates: start: 20050501

REACTIONS (4)
  - CHOLELITHIASIS [None]
  - DIVERTICULUM [None]
  - PNEUMONIA [None]
  - TRANSFUSION [None]
